FAERS Safety Report 8330374-0 (Version None)
Quarter: 2012Q2

REPORT INFORMATION
  Report Type: 
  Country: None (occurrence: None)
  Receive Date: 20120502
  Receipt Date: 20120403
  Transmission Date: 20120825
  Serious: No
  Sender: FDA-Public Use
  Company Number: US-AMGEN-USASP2012007263

PATIENT
  Age: 60 Year
  Sex: Female

DRUGS (1)
  1. ENBREL [Suspect]
     Indication: RHEUMATOID ARTHRITIS
     Dosage: 50 MG, QWK
     Dates: start: 20120125

REACTIONS (10)
  - HEART RATE INCREASED [None]
  - NERVOUSNESS [None]
  - DYSPNOEA [None]
  - RASH PRURITIC [None]
  - FLUSHING [None]
  - FOREIGN BODY IN EYE [None]
  - ASTHENIA [None]
  - DIZZINESS [None]
  - RHEUMATOID ARTHRITIS [None]
  - SUPERFICIAL INJURY OF EYE [None]
